FAERS Safety Report 4675466-2 (Version None)
Quarter: 2005Q2

REPORT INFORMATION
  Report Type: 
  Country: None (occurrence: None)
  Receive Date: 20050527
  Receipt Date: 20050316
  Transmission Date: 20051028
  Serious: No
  Sender: FDA-Public Use
  Company Number: US-BRISTOL-MYERS SQUIBB COMPANY-12899522

PATIENT
  Age: 52 Year
  Sex: Male
  Weight: 82 kg

DRUGS (9)
  1. ABILIFY [Suspect]
     Indication: BIPOLAR DISORDER
     Route: 048
  2. STRATTERA [Concomitant]
     Indication: ATTENTION DEFICIT/HYPERACTIVITY DISORDER
  3. OMEPRAZOLE [Concomitant]
     Indication: GASTROOESOPHAGEAL REFLUX DISEASE
  4. ZOCOR [Concomitant]
     Indication: BLOOD CHOLESTEROL INCREASED
  5. LISINOPRIL [Concomitant]
     Indication: HYPERTENSION
  6. KLONOPIN [Concomitant]
     Indication: SLEEP APNOEA SYNDROME
  7. CLARITIN [Concomitant]
     Indication: MULTIPLE ALLERGIES
  8. NASAREL [Concomitant]
     Indication: MULTIPLE ALLERGIES
     Route: 045
  9. ETODOLAC [Concomitant]
     Indication: ARTHRITIS

REACTIONS (1)
  - RESTLESSNESS [None]
